FAERS Safety Report 9297111 (Version 3)
Quarter: 2013Q3

REPORT INFORMATION
  Report Type: Spontaneous
  Country: CZ (occurrence: CZ)
  Receive Date: 20130520
  Receipt Date: 20130716
  Transmission Date: 20140515
  Serious: Yes (Other)
  Sender: FDA-Public Use
  Company Number: CZ-AMGEN-CZESP2013033599

PATIENT
  Age: 7 Year
  Sex: Male
  Weight: 25 kg

DRUGS (3)
  1. NPLATE [Suspect]
     Indication: IMMUNE THROMBOCYTOPENIC PURPURA
     Dosage: 40 MG/KG PER WEEK
     Route: 058
     Dates: start: 20121031
  2. PREDNISONE [Suspect]
     Indication: IMMUNE THROMBOCYTOPENIC PURPURA
     Dosage: 4 MG/KG, QD
     Route: 048
     Dates: start: 20121213, end: 20121217
  3. PREDNISONE [Suspect]
     Dosage: 1 MG/KG, QD
     Route: 048
     Dates: start: 20130116, end: 20130206

REACTIONS (3)
  - Platelet count decreased [Not Recovered/Not Resolved]
  - Antibody test positive [Unknown]
  - Drug ineffective [Not Recovered/Not Resolved]
